FAERS Safety Report 18212935 (Version 2)
Quarter: 2020Q3

REPORT INFORMATION
  Report Type: Spontaneous
  Country: US (occurrence: US)
  Receive Date: 20200831
  Receipt Date: 20200905
  Transmission Date: 20201103
  Serious: No
  Sender: FDA-Public Use
  Company Number: US-009507513-2008USA011936

PATIENT
  Age: 15 Year
  Sex: Female
  Weight: 58.69 kg

DRUGS (1)
  1. NEXPLANON [Suspect]
     Active Substance: ETONOGESTREL
     Dosage: 1 ROD EVERY 3 YEARS, SUPERFICIALLY INSERTED IN THE LEFT UPPER ARM
     Dates: start: 20170922, end: 20200812

REACTIONS (4)
  - Foreign body [Recovered/Resolved]
  - No adverse event [Unknown]
  - Device placement issue [Recovered/Resolved]
  - Product quality issue [Unknown]

NARRATIVE: CASE EVENT DATE: 20170922
